FAERS Safety Report 24883505 (Version 2)
Quarter: 2025Q1

REPORT INFORMATION
  Report Type: Spontaneous
  Country: KR (occurrence: KR)
  Receive Date: 20250124
  Receipt Date: 20250213
  Transmission Date: 20250408
  Serious: Yes (Hospitalization)
  Sender: SAMSUNG BIOEPIS
  Company Number: KR-SAMSUNG BIOEPIS-SB-2025-02447

PATIENT
  Age: 64 Year
  Sex: Female
  Weight: 47.5 kg

DRUGS (26)
  1. TRASTUZUMAB [Suspect]
     Active Substance: TRASTUZUMAB
     Indication: Gallbladder cancer
     Route: 042
     Dates: start: 20241128
  2. NIVOLUMAB [Suspect]
     Active Substance: NIVOLUMAB
     Indication: Gallbladder cancer
     Route: 042
     Dates: start: 20241128
  3. GEMCITABINE [Suspect]
     Active Substance: GEMCITABINE
     Indication: Gallbladder cancer
     Route: 042
     Dates: start: 20241128, end: 20250115
  4. GEMCITABINE [Suspect]
     Active Substance: GEMCITABINE
     Route: 042
     Dates: start: 20250123
  5. CISPLATIN [Suspect]
     Active Substance: CISPLATIN
     Indication: Gallbladder cancer
     Route: 042
     Dates: start: 20241128, end: 20250115
  6. CISPLATIN [Suspect]
     Active Substance: CISPLATIN
     Route: 042
     Dates: start: 20250123
  7. Daewong Ursa B [Concomitant]
     Indication: Prophylaxis
     Dosage: TID;
     Dates: start: 20241022, end: 20241103
  8. Daewong Ursa B [Concomitant]
     Dosage: TID;
     Dates: start: 20241106, end: 20241205
  9. Daewong Ursa B [Concomitant]
     Dosage: TID; PO;
     Route: 048
     Dates: start: 20241205, end: 20250114
  10. Dexamethasone Daewon [Concomitant]
     Indication: Prophylaxis
     Dosage: QD;
     Dates: start: 20241106, end: 20241106
  11. Dexamethasone Daewon [Concomitant]
     Dosage: QD;
     Route: 042
     Dates: start: 20241128
  12. PHENIL [CHLORPHENAMINE MALEATE] [Concomitant]
     Indication: Prophylaxis
     Dosage: QD;
     Dates: start: 20241106, end: 20241106
  13. PHENIL [CHLORPHENAMINE MALEATE] [Concomitant]
     Dosage: QD;
     Route: 042
     Dates: start: 20241128
  14. Huons Heparin Sodium [Concomitant]
     Indication: Product used for unknown indication
     Dosage: QD;
     Route: 042
     Dates: start: 20241128
  15. AKYNZEO [FOSNETUPITANT CHLORIDE HYDROCHLORIDE;PALONOSETRON HYDROCHLORI [Concomitant]
     Indication: Product used for unknown indication
     Dosage: CAPSULE, QD;
     Route: 048
     Dates: start: 20241128
  16. PROPRANOLOL HYDROCHLORIDE [Concomitant]
     Active Substance: PROPRANOLOL HYDROCHLORIDE
     Indication: Product used for unknown indication
     Route: 048
     Dates: start: 20241230, end: 20250114
  17. Dulackhan [Concomitant]
     Indication: Product used for unknown indication
     Dosage: POUCH, TID;
     Route: 048
     Dates: start: 20241230, end: 20250114
  18. SUPRAX [Concomitant]
     Active Substance: CEFIXIME
     Indication: Prophylaxis
     Dosage: BID; CAPSULE;
     Dates: start: 20250103, end: 20250107
  19. SUPRAX [Concomitant]
     Active Substance: CEFIXIME
     Dosage: BID; CAPSULE;
     Dates: start: 20250113, end: 20250114
  20. CHOLIACEN [Concomitant]
     Indication: Product used for unknown indication
     Route: 048
     Dates: start: 20250103, end: 20250114
  21. HUTOZOL [Concomitant]
     Indication: Prophylaxis
     Dosage: QD; PO;
     Route: 048
     Dates: start: 20250103
  22. CREZET [Concomitant]
     Indication: Product used for unknown indication
     Dosage: 10/5MG;
     Route: 048
     Dates: start: 20250103, end: 20250114
  23. HERBALS [Concomitant]
     Active Substance: HERBALS
     Indication: Prophylaxis
     Route: 048
     Dates: start: 20250103, end: 20250114
  24. PANTO K [Concomitant]
     Indication: Product used for unknown indication
     Route: 048
     Dates: start: 20250103, end: 20250114
  25. ROWACHOL [BORNEOL;CAMPHENE;CINEOLE;MENTHOL;MENTHONE;OLEA EUROPAEA;PINE [Concomitant]
     Indication: Product used for unknown indication
     Dates: start: 20250113, end: 20250114
  26. PROPRANOLOL HYDROCHLORIDE [Concomitant]
     Active Substance: PROPRANOLOL HYDROCHLORIDE
     Indication: Product used for unknown indication
     Route: 048
     Dates: start: 20241230, end: 20250114

REACTIONS (2)
  - Cholecystitis [Recovered/Resolved]
  - Off label use [Unknown]

NARRATIVE: CASE EVENT DATE: 20250114
